FAERS Safety Report 20793728 (Version 2)
Quarter: 2022Q3

REPORT INFORMATION
  Report Type: Report from Study
  Country: DE (occurrence: None)
  Receive Date: 20220506
  Receipt Date: 20220920
  Transmission Date: 20221027
  Serious: Yes (Hospitalization)
  Sender: FDA-Public Use
  Company Number: DE-ROCHE-2923719

PATIENT
  Age: 39 Year
  Sex: Female
  Weight: 74 kg

DRUGS (17)
  1. ATEZOLIZUMAB [Suspect]
     Active Substance: ATEZOLIZUMAB
     Indication: Triple negative breast cancer
     Dosage: DATE OF LAST DOSE PRIOR TO SAE:30/AUG/2021
     Route: 041
     Dates: start: 20210816
  2. PACLITAXEL [Suspect]
     Active Substance: PACLITAXEL
     Indication: Triple negative breast cancer
     Dosage: DATE OF LAST DOSE PRIOR TO SAE:06/SEP/2021?DATE OF LAST DOSE PRIOR TO SAE:13/SEP/2021
     Route: 042
     Dates: start: 20210830
  3. CARBOPLATIN [Suspect]
     Active Substance: CARBOPLATIN
     Indication: Triple negative breast cancer
     Dosage: DATE OF LAST DOSE PRIOR TO SAE:06/SEP/2021
     Route: 042
     Dates: start: 20210830
  4. CARBOPLATIN [Suspect]
     Active Substance: CARBOPLATIN
     Dosage: DATE OF LAST DOSE PRIOR TO SAE:13/SEP/2021
     Route: 042
     Dates: start: 20210830
  5. IBUPROFEN [Concomitant]
     Active Substance: IBUPROFEN
     Dosage: AS NEEDED
     Dates: start: 20210728
  6. NADROPARIN CALCIUM [Concomitant]
     Active Substance: NADROPARIN CALCIUM
     Dates: start: 20210729, end: 20210808
  7. ONDANSETRON [Concomitant]
     Active Substance: ONDANSETRON
     Dates: start: 20210830, end: 20220201
  8. GRANISETRON [Concomitant]
     Active Substance: GRANISETRON
     Dates: start: 20210830, end: 20220125
  9. CLEMASTINE [Concomitant]
     Active Substance: CLEMASTINE
     Dates: start: 20210830, end: 20211103
  10. DEXAMETHASONE [Concomitant]
     Active Substance: DEXAMETHASONE
     Dates: start: 20210830, end: 20220125
  11. DEXAMETHASONE [Concomitant]
     Active Substance: DEXAMETHASONE
     Dates: start: 20210802, end: 20220125
  12. APREPITANT [Concomitant]
     Active Substance: APREPITANT
     Dates: start: 20210830, end: 20220125
  13. APREPITANT [Concomitant]
     Active Substance: APREPITANT
     Dates: start: 20210830, end: 20220127
  14. THIAMINE [Concomitant]
     Active Substance: THIAMINE
     Dates: start: 20210802, end: 20220201
  15. PYRIDOXINE [Concomitant]
     Active Substance: PYRIDOXINE
     Dates: start: 20210802, end: 20220201
  16. METOCLOPRAMIDE [Concomitant]
     Active Substance: METOCLOPRAMIDE
     Dates: start: 20210830, end: 20220201
  17. ACETAMINOPHEN [Concomitant]
     Active Substance: ACETAMINOPHEN
     Dates: start: 20210914, end: 20210915

REACTIONS (1)
  - Eczema [Recovered/Resolved]

NARRATIVE: CASE EVENT DATE: 20210914
